FAERS Safety Report 5614059-7 (Version None)
Quarter: 2008Q1

REPORT INFORMATION
  Report Type: 
  Country: None (occurrence: None)
  Receive Date: 20080205
  Receipt Date: 20080124
  Transmission Date: 20080703
  Serious: Yes (Other)
  Sender: FDA-Public Use
  Company Number: JP-ROCHE-536073

PATIENT
  Age: 28 Year
  Sex: Female

DRUGS (9)
  1. CELLCEPT [Suspect]
     Dosage: 14 DAYS PRIOR OPERATION. DOSING REGIMEN REPORTED AS: 1000 MG/BODY/DAY.
     Route: 048
     Dates: start: 20070305
  2. CELLCEPT [Suspect]
     Dosage: ON HOSPITAL DAY ONE. DOSING REGIMEN REPORTED AS: 2000 MG/BODY/DAY.
     Route: 048
     Dates: start: 20070301, end: 20070101
  3. PROGRAF [Concomitant]
     Dosage: ROUTE: IV DRIP, FORM: INJECTABLE
     Dates: start: 20070101, end: 20070101
  4. PROGRAF [Concomitant]
     Dosage: ROUTE: ORAL, FORM: ORAL NOS
     Dates: start: 20070101
  5. SOLU-MEDROL [Concomitant]
     Route: 041
     Dates: start: 20070101, end: 20070101
  6. SPANIDIN [Concomitant]
     Route: 041
     Dates: start: 20070101, end: 20070101
  7. ALPROSTADIL [Concomitant]
     Dosage: ROUTE: INJECTABLE (NOS)
     Route: 050
     Dates: start: 20070101, end: 20070101
  8. ALPROSTADIL [Concomitant]
     Route: 050
     Dates: start: 20070101, end: 20070101
  9. FOY [Concomitant]
     Dosage: ROUTE: INJECTABLE (NOS)
     Route: 050
     Dates: start: 20070101, end: 20070101

REACTIONS (3)
  - HAEMOLYTIC ANAEMIA [None]
  - HAEMOLYTIC URAEMIC SYNDROME [None]
  - THROMBOTIC THROMBOCYTOPENIC PURPURA [None]
